FAERS Safety Report 24327238 (Version 1)
Quarter: 2024Q3

REPORT INFORMATION
  Report Type: Spontaneous
  Country: US (occurrence: US)
  Receive Date: 20240917
  Receipt Date: 20240917
  Transmission Date: 20241017
  Serious: Yes (Life-Threatening, Other)
  Sender: ACCORD
  Company Number: US-Accord-446062

PATIENT
  Age: 48 Year
  Sex: Female
  Weight: 110 kg

DRUGS (3)
  1. SUCCINYLCHOLINE [Suspect]
     Active Substance: SUCCINYLCHOLINE
     Indication: Hypotonia
     Dosage: 100 TO 120 MG
  2. METHOHEXITAL [Suspect]
     Active Substance: METHOHEXITAL
     Indication: Hypotonia
     Route: 042
  3. KETAMINE [Suspect]
     Active Substance: KETAMINE
     Indication: Product used for unknown indication

REACTIONS (3)
  - Respiratory paralysis [Recovered/Resolved]
  - Hypoxia [Recovered/Resolved]
  - Upper airway obstruction [Recovered/Resolved]
